FAERS Safety Report 9491427 (Version 2)
Quarter: 2013Q1

REPORT INFORMATION
  Report Type: Not Available
  Country: US (occurrence: US)
  Receive Date: 20120619
  Receipt Date: 20120619
  Transmission Date: 20140127
  Serious: Yes (Hospitalization)
  Sender: FDA-Public Use
  Company Number: US-LUNDBECK-DKLU1073813

PATIENT
  Age: 7 None
  Sex: Female
  Weight: 31.3 kg

DRUGS (10)
  1. CLOBAZAM [Suspect]
     Indication: LENNOX-GASTAUT SYNDROME
     Route: 048
     Dates: start: 20091019
  2. CLOBAZAM [Suspect]
     Route: 050
     Dates: start: 20110926
  3. DEPAKOTE [Concomitant]
     Indication: EPILEPSY
     Route: 048
     Dates: start: 20110128
  4. TOPIRAMATE [Concomitant]
     Indication: EPILEPSY
     Route: 048
     Dates: start: 20091109
  5. PULMICORT [Concomitant]
     Indication: ASTHMA
     Route: 050
     Dates: start: 20080129
  6. ROBINUL [Concomitant]
     Indication: INCREASED UPPER AIRWAY SECRETION
     Route: 048
     Dates: start: 20110715
  7. ALBUTEROL [Concomitant]
     Indication: RESPIRATORY DISORDER
     Route: 050
     Dates: start: 201105
  8. MELATONIN [Concomitant]
     Indication: SLEEP DISORDER
     Route: 048
     Dates: start: 2011
  9. BENADRYL [Concomitant]
     Indication: SLEEP DISORDER
     Route: 048
     Dates: start: 20110715
  10. DIASTAT [Concomitant]
     Indication: CONVULSION
     Route: 050
     Dates: start: 20101203

REACTIONS (1)
  - Pneumonia [Recovered/Resolved]
